FAERS Safety Report 4542140-2 (Version None)
Quarter: 2004Q4

REPORT INFORMATION
  Report Type: 
  Country: None (occurrence: None)
  Receive Date: 20041227
  Receipt Date: 20041216
  Transmission Date: 20050328
  Serious: Yes (Death)
  Sender: FDA-Public Use
  Company Number: 2004082514

PATIENT
  Age: 79 Year
  Sex: Female

DRUGS (1)
  1. ZYRTEC [Suspect]
     Indication: ILL-DEFINED DISORDER

REACTIONS (2)
  - ARTHRALGIA [None]
  - BACK PAIN [None]
